FAERS Safety Report 7144375-1 (Version None)
Quarter: 2010Q4

REPORT INFORMATION
  Report Type: 
  Country: None (occurrence: None)
  Receive Date: 20101208
  Receipt Date: 20101112
  Transmission Date: 20110411
  Serious: No
  Sender: FDA-Public Use
  Company Number: US-BAYER-201041573NA

PATIENT
  Sex: Female

DRUGS (3)
  1. DROSPIRENONE + ETHINYLESTRADIOL 20A?G (24+4) [Suspect]
     Indication: ACNE
  2. YASMIN [Suspect]
     Indication: ACNE
  3. YASMIN [Suspect]

REACTIONS (1)
  - INJURY [None]
